FAERS Safety Report 16278312 (Version 1)
Quarter: 2019Q2

REPORT INFORMATION
  Report Type: Spontaneous
  Country: GB (occurrence: GB)
  Receive Date: 20190506
  Receipt Date: 20190506
  Transmission Date: 20190711
  Serious: Yes (Hospitalization)
  Sender: FDA-Public Use
  Company Number: GB-MYLANLABS-2019M1042946

PATIENT
  Age: 58 Year
  Sex: Male

DRUGS (2)
  1. TEMOZOLOMIDE. [Suspect]
     Active Substance: TEMOZOLOMIDE
     Indication: PRODUCT USED FOR UNKNOWN INDICATION
     Dosage: UNK UNK, CYCLE(SIXTH-LINE THERAPY; 4 CYCLES COMPLETED THEN DOSE REDUCTION DUE TO DIARRHEA)
     Dates: start: 201701
  2. CAPECITABINE. [Suspect]
     Active Substance: CAPECITABINE
     Indication: PRODUCT USED FOR UNKNOWN INDICATION
     Dosage: UNK UNK, CYCLE(SIXTH-LINE THERAPY; 4 CYCLES COMPLETED THEN DOSE REDUCTION DUE TO DIARRHEA )
     Dates: start: 201701

REACTIONS (2)
  - Diarrhoea [Not Recovered/Not Resolved]
  - Functional gastrointestinal disorder [Not Recovered/Not Resolved]

NARRATIVE: CASE EVENT DATE: 201804
